FAERS Safety Report 5894777-6 (Version None)
Quarter: 2008Q3

REPORT INFORMATION
  Report Type: 
  Country: None (occurrence: None)
  Receive Date: 20080924
  Receipt Date: 20080505
  Transmission Date: 20090109
  Serious: No
  Sender: FDA-Public Use
  Company Number: US-ASTRAZENECA-2008UW09301

PATIENT
  Age: 41 Year
  Sex: Male
  Weight: 101.6 kg

DRUGS (5)
  1. SEROQUEL [Suspect]
     Indication: SCHIZOPHRENIA
     Route: 048
  2. SEROQUEL [Suspect]
     Route: 048
  3. PSEUDOFED [Concomitant]
  4. ASPIRIN [Concomitant]
  5. TUMS [Concomitant]

REACTIONS (7)
  - CARDIAC DISORDER [None]
  - DEAFNESS [None]
  - NASAL CONGESTION [None]
  - NERVOUSNESS [None]
  - RESPIRATORY DISORDER [None]
  - TINNITUS [None]
  - WEIGHT INCREASED [None]
